FAERS Safety Report 23288302 (Version 1)
Quarter: 2023Q4

REPORT INFORMATION
  Report Type: Spontaneous
  Country: GB (occurrence: GB)
  Receive Date: 20231212
  Receipt Date: 20231212
  Transmission Date: 20240110
  Serious: Yes (Death, Other)
  Sender: FDA-Public Use
  Company Number: None

PATIENT
  Age: 68 Year
  Sex: Female
  Weight: 108 kg

DRUGS (10)
  1. ENOXAPARIN SODIUM [Suspect]
     Active Substance: ENOXAPARIN SODIUM
     Indication: Thrombosis prophylaxis
     Dosage: 60 MG, QD
     Dates: start: 20230619
  2. CEFUROXIME [Concomitant]
     Active Substance: CEFUROXIME
     Indication: Prophylaxis
     Dosage: UNK
     Dates: start: 20230619, end: 20230619
  3. CODEINE PHOSPHATE [Concomitant]
     Active Substance: CODEINE PHOSPHATE
     Indication: Analgesic therapy
     Dosage: UNK
     Dates: start: 20230619, end: 20230622
  4. INDAPAMIDE [Concomitant]
     Active Substance: INDAPAMIDE
     Indication: Hypertension
     Dosage: UNK
  5. LACTULOSE [Concomitant]
     Active Substance: LACTULOSE
     Indication: Constipation prophylaxis
     Dosage: UNK
     Dates: start: 20230620, end: 20230621
  6. MOVICOL [Concomitant]
     Active Substance: POLYETHYLENE GLYCOL 3350\POTASSIUM CHLORIDE\SODIUM BICARBONATE\SODIUM CHLORIDE
     Indication: Constipation prophylaxis
     Dosage: UNK
     Dates: start: 20230620, end: 20230621
  7. NEFOPAM [Concomitant]
     Active Substance: NEFOPAM
     Indication: Analgesic therapy
     Dosage: UNK
     Dates: start: 20230620, end: 20230621
  8. OXYCONTIN [Concomitant]
     Active Substance: OXYCODONE HYDROCHLORIDE
     Indication: Analgesic therapy
     Dosage: UNK
     Dates: start: 20230619, end: 20230620
  9. ACETAMINOPHEN [Concomitant]
     Active Substance: ACETAMINOPHEN
     Indication: Analgesic therapy
     Dosage: UNK
     Dates: start: 20230619, end: 20230622
  10. PERINDOPRIL [Concomitant]
     Active Substance: PERINDOPRIL
     Indication: Hypertension
     Dosage: UNK

REACTIONS (3)
  - Thrombocytopenia [Fatal]
  - Myocardial infarction [Fatal]
  - Coronary artery occlusion [Fatal]

NARRATIVE: CASE EVENT DATE: 20230704
